FAERS Safety Report 4996608-5 (Version None)
Quarter: 2006Q2

REPORT INFORMATION
  Report Type: 
  Country: None (occurrence: None)
  Receive Date: 20060509
  Receipt Date: 20060502
  Transmission Date: 20061013
  Serious: Yes (Hospitalization)
  Sender: FDA-Public Use
  Company Number: DE-ABBOTT-06P-062-0332162-00

PATIENT
  Sex: Female
  Weight: 93 kg

DRUGS (6)
  1. HUMIRA [Suspect]
     Indication: RHEUMATOID ARTHRITIS
     Route: 058
     Dates: start: 20060110, end: 20060302
  2. HUMIRA [Suspect]
     Route: 058
     Dates: start: 20060418
  3. METHOTREXATE [Concomitant]
     Indication: RHEUMATOID ARTHRITIS
  4. GLUCOCORTICOIDS [Concomitant]
     Indication: RHEUMATOID ARTHRITIS
     Route: 048
     Dates: end: 20060425
  5. GLUCOCORTICOIDS [Concomitant]
     Route: 048
     Dates: start: 20060426
  6. NON-STEROIDAL ANTIRHEUMATIC [Concomitant]
     Indication: RHEUMATOID ARTHRITIS

REACTIONS (2)
  - NERVOUS SYSTEM DISORDER [None]
  - VIITH NERVE INJURY [None]
